FAERS Safety Report 4568250-1 (Version None)
Quarter: 2005Q1

REPORT INFORMATION
  Report Type: 
  Country: None (occurrence: None)
  Receive Date: 20050202
  Receipt Date: 20050128
  Transmission Date: 20050727
  Serious: Yes (Other)
  Sender: FDA-Public Use
  Company Number: PHBS2005AT01596

PATIENT
  Age: 16 Year
  Sex: Female

DRUGS (2)
  1. TRILEPTAL [Suspect]
     Indication: FRONTAL LOBE EPILEPSY
     Dosage: 600 MG/DAY
     Route: 065
     Dates: start: 20040410, end: 20040411
  2. VALPROIC ACID [Concomitant]

REACTIONS (3)
  - ANAPHYLACTOID REACTION [None]
  - FLUSHING [None]
  - URTICARIA [None]
